FAERS Safety Report 12300896 (Version 1)
Quarter: 2016Q2

REPORT INFORMATION
  Report Type: Spontaneous
  Country: CN (occurrence: CN)
  Receive Date: 20160425
  Receipt Date: 20160425
  Transmission Date: 20160815
  Serious: Yes (Other)
  Sender: FDA-Public Use
  Company Number: PHHY2016CN055309

PATIENT
  Age: 64 Year
  Sex: Male
  Weight: 62.5 kg

DRUGS (3)
  1. TEGRETOL [Suspect]
     Active Substance: CARBAMAZEPINE
     Indication: NEURALGIA
     Dosage: 0.2 G, BID
     Route: 048
     Dates: start: 20151109, end: 20151110
  2. MEZLOCILLIN SODIUM W/SULBACTAM SODIUM [Suspect]
     Active Substance: MEZLOCILLIN SODIUM\SULBACTAM SODIUM
     Indication: INFECTION
     Dosage: 3.75 G, BID
     Route: 041
     Dates: start: 20151108, end: 20151111
  3. SODIUM CHLORIDE. [Concomitant]
     Active Substance: SODIUM CHLORIDE
     Indication: MEDICATION DILUTION
     Dosage: 100 ML, BID
     Route: 042
     Dates: start: 20151108, end: 20151111

REACTIONS (4)
  - Swelling [None]
  - Pruritus [Recovering/Resolving]
  - Joint swelling [None]
  - Erythema [Recovering/Resolving]

NARRATIVE: CASE EVENT DATE: 20151110
